FAERS Safety Report 10099783 (Version 2)
Quarter: 2016Q3

REPORT INFORMATION
  Report Type: Spontaneous
  Country: FR (occurrence: FR)
  Receive Date: 20140423
  Receipt Date: 20160810
  Transmission Date: 20161108
  Serious: Yes (Hospitalization)
  Sender: FDA-Public Use
  Company Number: FR-BAYER-2014-056701

PATIENT
  Age: 35 Year
  Sex: Female

DRUGS (7)
  1. MIRENA [Suspect]
     Active Substance: LEVONORGESTREL
     Indication: MENOMETRORRHAGIA
     Dosage: 20 MCG/24HR, CONT
     Route: 015
     Dates: start: 20150722, end: 20160531
  2. PAROXETINE. [Suspect]
     Active Substance: PAROXETINE
     Indication: DEPRESSION
     Dosage: 20 MG, QD
     Route: 048
     Dates: start: 20131218, end: 20140206
  3. LEVOCETIRIZINE [Suspect]
     Active Substance: LEVOCETIRIZINE
     Indication: SEASONAL ALLERGY
     Dosage: 5 MG, QD
     Route: 048
     Dates: start: 20130906, end: 20131218
  4. DIVARIUS [Suspect]
     Active Substance: PAROXETINE MESYLATE
     Indication: DEPRESSION
     Dosage: 20 MG, QD
     Route: 048
     Dates: start: 20130906, end: 20131218
  5. DIVARIUS [Suspect]
     Active Substance: PAROXETINE MESYLATE
     Indication: DEPRESSION
     Dosage: UNK
     Route: 048
     Dates: start: 201403, end: 201408
  6. PAROXETINE. [Suspect]
     Active Substance: PAROXETINE
     Indication: DEPRESSION
     Dosage: UNK
     Route: 048
     Dates: end: 20160611
  7. MIRENA [Suspect]
     Active Substance: LEVONORGESTREL
     Indication: CONTRACEPTION
     Dosage: 20 MCG/24HR, CONT
     Route: 015
     Dates: start: 20131002, end: 20131230

REACTIONS (2)
  - Thrombotic thrombocytopenic purpura [Unknown]
  - Microangiopathic haemolytic anaemia [Unknown]

NARRATIVE: CASE EVENT DATE: 20131216
